FAERS Safety Report 5608291-6 (Version None)
Quarter: 2008Q1

REPORT INFORMATION
  Report Type: 
  Country: None (occurrence: None)
  Receive Date: 20080111
  Receipt Date: 20071109
  Transmission Date: 20080703
  Serious: Yes (Other)
  Sender: FDA-Public Use
  Company Number: HQWYE073329JAN03

PATIENT
  Age: 46 Year
  Sex: Female

DRUGS (2)
  1. PREMPRO [Suspect]
     Dosage: 0.625MG/UNSPECIFIED, ORAL
     Route: 048
     Dates: start: 20010101, end: 20020101
  2. PREMARIN [Suspect]

REACTIONS (3)
  - ALOPECIA [None]
  - CHLOASMA [None]
  - THROMBOSIS [None]
